FAERS Safety Report 7374645-3 (Version None)
Quarter: 2011Q1

REPORT INFORMATION
  Report Type: 
  Country: None (occurrence: None)
  Receive Date: 20110325
  Receipt Date: 20100609
  Transmission Date: 20110831
  Serious: No
  Sender: FDA-Public Use
  Company Number: US-MYLANLABS-2010S1010379

PATIENT
  Age: 60 Year
  Sex: Female
  Weight: 77.11 kg

DRUGS (3)
  1. XANAX [Concomitant]
     Indication: PANIC ATTACK
     Route: 048
  2. FENTANYL-100 [Suspect]
     Indication: BACK PAIN
     Dosage: CHANGED Q72H
     Route: 062
     Dates: start: 20100401
  3. SOMA [Concomitant]
     Indication: BACK PAIN
     Route: 048

REACTIONS (6)
  - DEPRESSION [None]
  - PANIC ATTACK [None]
  - ALOPECIA [None]
  - HYPERHIDROSIS [None]
  - PARANOIA [None]
  - SKIN ODOUR ABNORMAL [None]
